FAERS Safety Report 21917172 (Version 2)
Quarter: 2023Q1

REPORT INFORMATION
  Report Type: Spontaneous
  Country: JP (occurrence: JP)
  Receive Date: 20230126
  Receipt Date: 20230227
  Transmission Date: 20230417
  Serious: Yes (Other)
  Sender: FDA-Public Use
  Company Number: JP-ASTELLAS-2023JP000594

PATIENT
  Sex: Female

DRUGS (2)
  1. LINACLOTIDE [Suspect]
     Active Substance: LINACLOTIDE
     Indication: Product used for unknown indication
     Dosage: 0.25 MG, QD
  2. LINACLOTIDE [Suspect]
     Active Substance: LINACLOTIDE
     Dosage: 0.5 MG, UNKNOWN FREQ. ONCE

REACTIONS (1)
  - Ileus [Recovered/Resolved]
